FAERS Safety Report 7843081 (Version 4)
Quarter: 2014Q4

REPORT INFORMATION
  Report Type: Spontaneous
  Country: US (occurrence: US)
  Receive Date: 20110307
  Receipt Date: 20141103
  Transmission Date: 20150529
  Serious: Yes (Other)
  Sender: FDA-Public Use
  Company Number: US-BAYER-2011-018714

PATIENT
  Age: 24 Year
  Sex: Female
  Weight: 61 kg

DRUGS (10)
  1. MIRENA [Suspect]
     Active Substance: LEVONORGESTREL
     Indication: CONTRACEPTION
     Dosage: 20MCG/24HR CONT
     Route: 015
     Dates: start: 20100415, end: 20110311
  2. BACTRIM [Concomitant]
     Active Substance: SULFAMETHOXAZOLE\TRIMETHOPRIM
  3. LORATADINE. [Concomitant]
     Active Substance: LORATADINE
  4. IBUPROFEN. [Concomitant]
     Active Substance: IBUPROFEN
  5. FLONASE [Concomitant]
     Active Substance: FLUTICASONE PROPIONATE
  6. ZYRTEC [Concomitant]
     Active Substance: CETIRIZINE HYDROCHLORIDE
  7. MEDROL [Concomitant]
     Active Substance: METHYLPREDNISOLONE
  8. ZITHROMAX [Concomitant]
     Active Substance: AZITHROMYCIN DIHYDRATE
  9. KEFLEX [Concomitant]
     Active Substance: CEPHALEXIN
  10. BENADRYL [Concomitant]
     Active Substance: DIPHENHYDRAMINE HYDROCHLORIDE

REACTIONS (16)
  - Uterine haemorrhage [None]
  - Pelvic pain [None]
  - Depression [None]
  - Anxiety [None]
  - Injury [None]
  - Abdominal pain [None]
  - Medical device discomfort [None]
  - Medical device complication [None]
  - Device dislocation [None]
  - Fear [None]
  - Off label use [None]
  - Procedural pain [None]
  - Internal injury [None]
  - Uterine perforation [None]
  - Emotional distress [None]
  - Ovarian cyst [None]

NARRATIVE: CASE EVENT DATE: 20100604
